FAERS Safety Report 24895490 (Version 2)
Quarter: 2025Q1

REPORT INFORMATION
  Report Type: Report from Study
  Country: US (occurrence: US)
  Receive Date: 20250128
  Receipt Date: 20250131
  Transmission Date: 20250409
  Serious: Yes (Hospitalization, Other)
  Sender: NOVARTIS
  Company Number: US-002147023-NVSC2025US013856

PATIENT
  Sex: Male

DRUGS (4)
  1. SCEMBLIX [Suspect]
     Active Substance: ASCIMINIB HYDROCHLORIDE
     Indication: Philadelphia chromosome negative
     Dosage: 40 MG, BID
     Route: 048
     Dates: start: 20231106, end: 20250114
  2. SCEMBLIX [Suspect]
     Active Substance: ASCIMINIB HYDROCHLORIDE
     Indication: Chronic myeloid leukaemia
  3. SCEMBLIX [Suspect]
     Active Substance: ASCIMINIB HYDROCHLORIDE
     Indication: Acute myeloid leukaemia
  4. SCEMBLIX [Suspect]
     Active Substance: ASCIMINIB HYDROCHLORIDE
     Indication: Non-Hodgkin^s lymphoma

REACTIONS (10)
  - Myocardial infarction [Unknown]
  - Colon cancer [Unknown]
  - Tachycardia [Unknown]
  - Chronic myeloid leukaemia [Unknown]
  - Metastases to spine [Unknown]
  - Ventricular tachycardia [Unknown]
  - Drug intolerance [Unknown]
  - Off label use [Unknown]
  - Sinus tachycardia [Unknown]
  - Dysstasia [Unknown]
